FAERS Safety Report 6083466-3 (Version None)
Quarter: 2009Q1

REPORT INFORMATION
  Report Type: 
  Country: None (occurrence: None)
  Receive Date: 20090217
  Receipt Date: 20090130
  Transmission Date: 20090719
  Serious: Yes (Death)
  Sender: FDA-Public Use
  Company Number: 000339

PATIENT
  Age: 33 Year
  Sex: Male

DRUGS (5)
  1. ALPRAZOLAM [Suspect]
  2. HYDROCODONE BITARTRATE [Suspect]
  3. CITALOPRAM HYDROBROMIDE [Suspect]
  4. BENZOYLECGONINE [Suspect]
  5. ACETAMINOPHEN [Suspect]

REACTIONS (6)
  - ACCIDENTAL DEATH [None]
  - ALCOHOL USE [None]
  - CORONARY ARTERY THROMBOSIS [None]
  - DRUG TOXICITY [None]
  - INTENTIONAL DRUG MISUSE [None]
  - MULTIPLE DRUG OVERDOSE [None]
